FAERS Safety Report 9163349 (Version 1)
Quarter: 2013Q1

REPORT INFORMATION
  Report Type: Spontaneous
  Country: IT (occurrence: None)
  Receive Date: 20130221
  Receipt Date: 20130221
  Transmission Date: 20140127
  Serious: Yes (Other)
  Sender: FDA-Public Use
  Company Number: HRA-CDB20130016

PATIENT
  Sex: Female

DRUGS (1)
  1. ELLAONE [Suspect]
     Indication: CONTRACEPTION
     Route: 048

REACTIONS (3)
  - Unintended pregnancy [None]
  - Abortion spontaneous [None]
  - No therapeutic response [None]
